FAERS Safety Report 9794735 (Version 2)
Quarter: 2014Q1

REPORT INFORMATION
  Report Type: Spontaneous
  Country: PL (occurrence: PL)
  Receive Date: 20140102
  Receipt Date: 20140122
  Transmission Date: 20141002
  Serious: Yes (Hospitalization)
  Sender: FDA-Public Use
  Company Number: PL-009507513-1312POL012583

PATIENT
  Age: 2 Year
  Sex: Male
  Weight: 15.7 kg

DRUGS (3)
  1. SINGULAIR 4 [Suspect]
     Indication: ASTHMA
     Dosage: 4 MG, QD
     Route: 048
     Dates: start: 201212
  2. PULMICORT [Concomitant]
     Indication: ASTHMA
     Dosage: 250 MICROGRAM, QD
  3. AERIUS [Concomitant]
     Dosage: 2.5 ML DAILY
     Route: 048

REACTIONS (1)
  - Henoch-Schonlein purpura [Recovered/Resolved]
